FAERS Safety Report 20349711 (Version 1)
Quarter: 2022Q1

REPORT INFORMATION
  Report Type: Spontaneous
  Country: US (occurrence: None)
  Receive Date: 20220118
  Receipt Date: 20220118
  Transmission Date: 20220423
  Serious: Yes (Death)
  Sender: FDA-Public Use
  Company Number: None

PATIENT
  Age: 60 Year
  Sex: Male

DRUGS (1)
  1. OPDIVO [Suspect]
     Active Substance: NIVOLUMAB
     Indication: Hepatocellular carcinoma
     Dosage: 240MG OTHER INTRAVENOUS  DRIP
     Route: 041
     Dates: start: 202110, end: 202112

REACTIONS (1)
  - Death [None]

NARRATIVE: CASE EVENT DATE: 20211231
